FAERS Safety Report 7435422-8 (Version None)
Quarter: 2011Q2

REPORT INFORMATION
  Report Type: 
  Country: None (occurrence: None)
  Receive Date: 20110425
  Receipt Date: 20110414
  Transmission Date: 20111010
  Serious: Yes (Other)
  Sender: FDA-Public Use
  Company Number: ES-MERCK-1104ESP00043

PATIENT
  Age: 48 Month
  Sex: Male

DRUGS (1)
  1. SINGULAIR [Suspect]
     Route: 048
     Dates: start: 20090101, end: 20110301

REACTIONS (1)
  - PERSONALITY DISORDER OF CHILDHOOD [None]
